FAERS Safety Report 5657573-0 (Version None)
Quarter: 2008Q1

REPORT INFORMATION
  Report Type: 
  Country: None (occurrence: None)
  Receive Date: 20080310
  Receipt Date: 20080228
  Transmission Date: 20080703
  Serious: Yes (Other)
  Sender: FDA-Public Use
  Company Number: PHBS2008GB03015

PATIENT
  Sex: Female

DRUGS (10)
  1. NIFEDIPINE [Concomitant]
     Route: 064
  2. SYMBICORT [Concomitant]
     Route: 064
  3. STEROIDS NOS [Concomitant]
     Route: 064
  4. CYCLOPHOSPHAMIDE [Concomitant]
     Route: 064
  5. ALBUTEROL [Concomitant]
     Route: 064
  6. PREDNISOLONE [Concomitant]
     Route: 064
  7. ANESTHETICS NOS [Concomitant]
     Route: 064
  8. LABETALOL HCL [Concomitant]
     Route: 064
  9. ADRENALINE [Concomitant]
  10. HYDRALAZINE HCL [Suspect]
     Route: 064

REACTIONS (2)
  - DRUG EXPOSURE DURING PREGNANCY [None]
  - PREMATURE BABY [None]
